FAERS Safety Report 8246948-1 (Version None)
Quarter: 2012Q1

REPORT INFORMATION
  Report Type: 
  Country: None (occurrence: None)
  Receive Date: 20120330
  Receipt Date: 20120322
  Transmission Date: 20120608
  Serious: Yes (Hospitalization)
  Sender: FDA-Public Use
  Company Number: SE-NAPPMUNDI-GBR-2012-0010101

PATIENT
  Sex: Male
  Weight: 71 kg

DRUGS (3)
  1. IMDUR [Concomitant]
     Indication: ANGINA PECTORIS
     Dosage: 30 MG, DAILY
     Route: 048
     Dates: start: 20010101
  2. LOSARTAN POTASSIUM [Concomitant]
     Indication: HYPERTENSION
     Dosage: 50 MG, DAILY
     Route: 048
     Dates: start: 20110101
  3. BUPRENORPHINE [Suspect]
     Indication: OSTEOARTHRITIS
     Dosage: 10 MCG, Q1H
     Route: 062
     Dates: start: 20120221, end: 20120322

REACTIONS (2)
  - CHOLELITHIASIS [None]
  - PANCREATITIS ACUTE [None]
